FAERS Safety Report 6884941-1 (Version None)
Quarter: 2010Q3

REPORT INFORMATION
  Report Type: 
  Country: None (occurrence: None)
  Receive Date: 20100729
  Receipt Date: 20080213
  Transmission Date: 20110219
  Serious: No
  Sender: FDA-Public Use
  Company Number: US-PFIZER INC-2007065339

PATIENT
  Sex: Female
  Weight: 95.454 kg

DRUGS (13)
  1. CELEBREX [Suspect]
     Indication: FIBROMYALGIA
     Dates: start: 20050101
  2. ACTOS [Concomitant]
     Indication: TYPE 2 DIABETES MELLITUS
  3. LANTUS [Concomitant]
     Indication: TYPE 2 DIABETES MELLITUS
  4. ENALAPRIL [Concomitant]
  5. TOPAMAX [Concomitant]
  6. ASCORBIC ACID [Concomitant]
  7. MONTELUKAST SODIUM [Concomitant]
     Indication: HYPERSENSITIVITY
  8. LIPITOR [Concomitant]
     Indication: BLOOD CHOLESTEROL INCREASED
  9. NEXIUM [Concomitant]
  10. CYMBALTA [Concomitant]
  11. SKELAXIN [Concomitant]
     Indication: MUSCLE SPASMS
  12. ZYRTEC [Concomitant]
     Indication: HYPERSENSITIVITY
  13. CALCIUM WITH VITAMIN D [Concomitant]
     Indication: FIBROMYALGIA

REACTIONS (1)
  - PAIN [None]
